FAERS Safety Report 20741301 (Version 7)
Quarter: 2023Q2

REPORT INFORMATION
  Report Type: Spontaneous
  Country: CA (occurrence: CA)
  Receive Date: 20220422
  Receipt Date: 20230503
  Transmission Date: 20230722
  Serious: Yes (Other)
  Sender: FDA-Public Use
  Company Number: CA-TEVA-2019-CA-1105603

PATIENT
  Age: 53 Year
  Sex: Male

DRUGS (85)
  1. DULOXETINE [Suspect]
     Active Substance: DULOXETINE
     Indication: Migraine
     Route: 065
  2. DULOXETINE [Suspect]
     Active Substance: DULOXETINE
     Indication: Product used for unknown indication
     Route: 065
  3. DULOXETINE [Suspect]
     Active Substance: DULOXETINE
     Route: 065
  4. AMITRIPTYLINE [Suspect]
     Active Substance: AMITRIPTYLINE
     Indication: Product used for unknown indication
     Route: 065
  5. CODEINE [Suspect]
     Active Substance: CODEINE
     Indication: Migraine
     Route: 065
  6. CODEINE [Suspect]
     Active Substance: CODEINE
     Indication: Product used for unknown indication
     Route: 048
  7. DULOXETINE HYDROCHLORIDE [Suspect]
     Active Substance: DULOXETINE HYDROCHLORIDE
     Indication: Migraine
     Route: 065
  8. DULOXETINE HYDROCHLORIDE [Suspect]
     Active Substance: DULOXETINE HYDROCHLORIDE
     Route: 065
  9. DULOXETINE HYDROCHLORIDE [Suspect]
     Active Substance: DULOXETINE HYDROCHLORIDE
     Route: 065
  10. DULOXETINE HYDROCHLORIDE [Suspect]
     Active Substance: DULOXETINE HYDROCHLORIDE
     Route: 065
  11. DULOXETINE HYDROCHLORIDE [Suspect]
     Active Substance: DULOXETINE HYDROCHLORIDE
     Route: 065
  12. GABAPENTIN [Suspect]
     Active Substance: GABAPENTIN
     Indication: Product used for unknown indication
     Route: 065
  13. HYDROMORPHONE HYDROCHLORIDE [Suspect]
     Active Substance: HYDROMORPHONE HYDROCHLORIDE
     Indication: Migraine
     Route: 065
  14. IBUPROFEN [Suspect]
     Active Substance: IBUPROFEN
     Indication: Product used for unknown indication
     Route: 065
  15. IBUPROFEN [Suspect]
     Active Substance: IBUPROFEN
     Route: 065
  16. MORPHINE SULFATE [Suspect]
     Active Substance: MORPHINE SULFATE
     Indication: Migraine
     Route: 065
  17. NORTRIPTYLINE [Suspect]
     Active Substance: NORTRIPTYLINE
     Indication: Product used for unknown indication
     Route: 065
  18. ONDANSETRON HYDROCHLORIDE [Suspect]
     Active Substance: ONDANSETRON HYDROCHLORIDE
     Indication: Migraine
     Route: 065
  19. ONDANSETRON HYDROCHLORIDE [Suspect]
     Active Substance: ONDANSETRON HYDROCHLORIDE
     Indication: Product used for unknown indication
  20. PROPRANOLOL [Suspect]
     Active Substance: PROPRANOLOL HYDROCHLORIDE
     Indication: Migraine
     Route: 065
  21. ACETAMINOPHEN\TRAMADOL [Suspect]
     Active Substance: ACETAMINOPHEN\TRAMADOL
     Indication: Migraine
     Route: 065
  22. ALMOTRIPTAN MALATE [Suspect]
     Active Substance: ALMOTRIPTAN MALATE
     Indication: Product used for unknown indication
     Route: 065
  23. ALMOTRIPTAN MALATE [Suspect]
     Active Substance: ALMOTRIPTAN MALATE
     Route: 065
  24. VENLAFAXINE HYDROCHLORIDE [Suspect]
     Active Substance: VENLAFAXINE HYDROCHLORIDE
     Indication: Migraine
     Route: 065
  25. VENLAFAXINE HYDROCHLORIDE [Suspect]
     Active Substance: VENLAFAXINE HYDROCHLORIDE
     Indication: Product used for unknown indication
  26. DICLOFENAC SODIUM [Suspect]
     Active Substance: DICLOFENAC SODIUM
     Indication: Migraine
     Route: 065
  27. ACETAMINOPHEN\OXYCODONE HYDROCHLORIDE [Suspect]
     Active Substance: ACETAMINOPHEN\OXYCODONE HYDROCHLORIDE
     Indication: Migraine
     Route: 065
  28. TOPIRAMATE [Suspect]
     Active Substance: TOPIRAMATE
     Indication: Product used for unknown indication
     Route: 065
  29. TOPIRAMATE [Suspect]
     Active Substance: TOPIRAMATE
     Indication: Migraine
     Route: 048
  30. ESOMEPRAZOLE MAGNESIUM\NAPROXEN [Suspect]
     Active Substance: ESOMEPRAZOLE MAGNESIUM\NAPROXEN
     Indication: Product used for unknown indication
     Route: 065
  31. ESOMEPRAZOLE MAGNESIUM\NAPROXEN [Suspect]
     Active Substance: ESOMEPRAZOLE MAGNESIUM\NAPROXEN
     Route: 048
  32. ESOMEPRAZOLE MAGNESIUM\NAPROXEN [Suspect]
     Active Substance: ESOMEPRAZOLE MAGNESIUM\NAPROXEN
     Route: 065
  33. ACETAMINOPHEN\TRAMADOL [Suspect]
     Active Substance: ACETAMINOPHEN\TRAMADOL
     Indication: Migraine
     Route: 065
  34. TYLENOL [Suspect]
     Active Substance: ACETAMINOPHEN
     Indication: Product used for unknown indication
     Route: 065
  35. VIMOVO [Suspect]
     Active Substance: ESOMEPRAZOLE MAGNESIUM\NAPROXEN
     Indication: Product used for unknown indication
     Route: 065
  36. VIMOVO [Suspect]
     Active Substance: ESOMEPRAZOLE MAGNESIUM\NAPROXEN
     Route: 048
  37. VOLTAREN [Suspect]
     Active Substance: DICLOFENAC SODIUM
     Indication: Migraine
     Route: 065
  38. VOLTAREN [Suspect]
     Active Substance: DICLOFENAC SODIUM
     Route: 065
  39. AXERT [Suspect]
     Active Substance: ALMOTRIPTAN MALATE
     Indication: Product used for unknown indication
     Route: 065
  40. BOTOX [Suspect]
     Active Substance: ONABOTULINUMTOXINA
     Indication: Product used for unknown indication
     Route: 065
  41. CELEBREX [Suspect]
     Active Substance: CELECOXIB
     Indication: Product used for unknown indication
     Route: 065
  42. DEMEROL [Suspect]
     Active Substance: MEPERIDINE HYDROCHLORIDE
     Indication: Product used for unknown indication
     Route: 065
  43. DIHYDROERGOTAMINE [Suspect]
     Active Substance: DIHYDROERGOTAMINE
     Indication: Migraine
     Route: 065
  44. EFFEXOR [Suspect]
     Active Substance: VENLAFAXINE HYDROCHLORIDE
     Indication: Migraine
     Route: 065
  45. ENDOCET [Suspect]
     Active Substance: ACETAMINOPHEN\OXYCODONE HYDROCHLORIDE
     Indication: Migraine
     Route: 065
  46. ENDOCET [Suspect]
     Active Substance: ACETAMINOPHEN\OXYCODONE HYDROCHLORIDE
     Indication: Product used for unknown indication
  47. KETAMINE HYDROCHLORIDE [Suspect]
     Active Substance: KETAMINE HYDROCHLORIDE
     Indication: Migraine
     Route: 065
  48. KETAMINE HYDROCHLORIDE [Suspect]
     Active Substance: KETAMINE HYDROCHLORIDE
     Route: 065
  49. MAXALT [Suspect]
     Active Substance: RIZATRIPTAN BENZOATE
     Indication: Product used for unknown indication
     Route: 065
  50. TENORETIC [Suspect]
     Active Substance: ATENOLOL\CHLORTHALIDONE
     Indication: Product used for unknown indication
     Route: 065
  51. TENORETIC [Suspect]
     Active Substance: ATENOLOL\CHLORTHALIDONE
     Route: 048
  52. TENORETIC [Suspect]
     Active Substance: ATENOLOL\CHLORTHALIDONE
     Route: 048
  53. TENORETIC [Suspect]
     Active Substance: ATENOLOL\CHLORTHALIDONE
     Route: 065
  54. TENORETIC [Suspect]
     Active Substance: ATENOLOL\CHLORTHALIDONE
     Route: 065
  55. TENORETIC [Suspect]
     Active Substance: ATENOLOL\CHLORTHALIDONE
     Route: 048
  56. TENORETIC [Suspect]
     Active Substance: ATENOLOL\CHLORTHALIDONE
     Dosage: ONCE
     Route: 048
  57. TOPAMAX [Suspect]
     Active Substance: TOPIRAMATE
     Indication: Product used for unknown indication
     Route: 065
  58. TORADOL [Suspect]
     Active Substance: KETOROLAC TROMETHAMINE
     Indication: Product used for unknown indication
     Route: 065
  59. BOTULINUM TOXIN TYPE A [Suspect]
     Active Substance: BOTULINUM TOXIN TYPE A
     Indication: Product used for unknown indication
     Route: 065
  60. BOTULINUM TOXIN TYPE A [Suspect]
     Active Substance: BOTULINUM TOXIN TYPE A
     Route: 065
  61. BOTULINUM TOXIN TYPE A [Suspect]
     Active Substance: BOTULINUM TOXIN TYPE A
     Route: 065
  62. BOTULINUM TOXIN TYPE A [Suspect]
     Active Substance: BOTULINUM TOXIN TYPE A
     Dosage: TOTAL
     Route: 065
  63. BOTULINUM TOXIN TYPE A [Suspect]
     Active Substance: BOTULINUM TOXIN TYPE A
     Route: 065
  64. BOTULINUM TOXIN TYPE A [Suspect]
     Active Substance: BOTULINUM TOXIN TYPE A
     Route: 065
  65. BOTULINUM TOXIN TYPE A [Suspect]
     Active Substance: BOTULINUM TOXIN TYPE A
     Route: 065
  66. VIMOVO [Suspect]
     Active Substance: ESOMEPRAZOLE MAGNESIUM\NAPROXEN
     Indication: Product used for unknown indication
     Route: 048
  67. ACETAMINOPHEN AND CODEINE [Suspect]
     Active Substance: ACETAMINOPHEN\CODEINE PHOSPHATE
     Indication: Product used for unknown indication
     Route: 065
  68. ACETAMINOPHEN AND CODEINE [Suspect]
     Active Substance: ACETAMINOPHEN\CODEINE PHOSPHATE
     Route: 065
  69. TRIAMCINOLONE ACETONIDE [Suspect]
     Active Substance: TRIAMCINOLONE ACETONIDE
     Indication: Migraine
     Route: 065
  70. ZOFRAN [Suspect]
     Active Substance: ONDANSETRON HYDROCHLORIDE
     Indication: Migraine
     Route: 065
  71. ZOFRAN [Suspect]
     Active Substance: ONDANSETRON HYDROCHLORIDE
     Indication: Product used for unknown indication
  72. NAPROXEN [Suspect]
     Active Substance: NAPROXEN
     Indication: Product used for unknown indication
     Route: 048
  73. NAPROXEN [Suspect]
     Active Substance: NAPROXEN
     Route: 065
  74. HYDROMORPHONE HCL [Suspect]
     Active Substance: HYDROMORPHONE HYDROCHLORIDE
     Indication: Migraine
     Route: 065
  75. NORTRIPTYLINE [Suspect]
     Active Substance: NORTRIPTYLINE
     Indication: Product used for unknown indication
     Route: 065
  76. ACETAMINOPHEN\TRAMADOL HYDROCHLORIDE [Suspect]
     Active Substance: ACETAMINOPHEN\TRAMADOL HYDROCHLORIDE
     Indication: Migraine
     Route: 065
  77. ACETAMINOPHEN\TRAMADOL HYDROCHLORIDE [Suspect]
     Active Substance: ACETAMINOPHEN\TRAMADOL HYDROCHLORIDE
     Route: 065
  78. ACETAMINOPHEN\TRAMADOL HYDROCHLORIDE [Suspect]
     Active Substance: ACETAMINOPHEN\TRAMADOL HYDROCHLORIDE
     Route: 065
  79. ESOMEPRAZOLE MAGNESIUM [Suspect]
     Active Substance: ESOMEPRAZOLE MAGNESIUM
     Indication: Product used for unknown indication
     Route: 048
  80. ESOMEPRAZOLE MAGNESIUM [Suspect]
     Active Substance: ESOMEPRAZOLE MAGNESIUM
     Route: 048
  81. DICLOFENAC [Suspect]
     Active Substance: DICLOFENAC
     Indication: Migraine
     Route: 065
  82. MORPHINE [Suspect]
     Active Substance: MORPHINE
     Indication: Migraine
     Route: 065
  83. PROPRANOLOL HYDROCHLORIDE [Suspect]
     Active Substance: PROPRANOLOL HYDROCHLORIDE
     Indication: Migraine
     Route: 065
  84. TRIAMCINOLONE ACETONIDE [Suspect]
     Active Substance: TRIAMCINOLONE ACETONIDE
     Indication: Migraine
     Route: 065
  85. TRAMADOL HYDROCHLORIDE [Suspect]
     Active Substance: TRAMADOL HYDROCHLORIDE
     Indication: Migraine
     Route: 065

REACTIONS (9)
  - Hyperhidrosis [Unknown]
  - Nausea [Unknown]
  - Nephrolithiasis [Unknown]
  - Nightmare [Unknown]
  - Sedation [Unknown]
  - Product use in unapproved indication [Unknown]
  - Drug ineffective [Unknown]
  - Off label use [Unknown]
  - Product used for unknown indication [Unknown]
